FAERS Safety Report 13777793 (Version 1)
Quarter: 2017Q3

REPORT INFORMATION
  Report Type: Spontaneous
  Country: US (occurrence: US)
  Receive Date: 20170721
  Receipt Date: 20170721
  Transmission Date: 20171127
  Serious: Yes (Other)
  Sender: FDA-Public Use
  Company Number: US-TEVA-788429ACC

PATIENT
  Sex: Female

DRUGS (1)
  1. COPAXONE [Suspect]
     Active Substance: GLATIRAMER ACETATE

REACTIONS (9)
  - Bladder disorder [Unknown]
  - Refraction disorder [Unknown]
  - Paraesthesia [Unknown]
  - Multiple sclerosis relapse [Unknown]
  - Cognitive disorder [Unknown]
  - Gastrointestinal motility disorder [Unknown]
  - Balance disorder [Unknown]
  - Speech disorder [Unknown]
  - Fatigue [Unknown]

NARRATIVE: CASE EVENT DATE: 201608
